FAERS Safety Report 17857906 (Version 1)
Quarter: 2020Q2

REPORT INFORMATION
  Report Type: Spontaneous
  Country: US (occurrence: US)
  Receive Date: 20200604
  Receipt Date: 20200604
  Transmission Date: 20200714
  Serious: Yes (Life-Threatening, Hospitalization, Other)
  Sender: FDA-Public Use
  Company Number: US-HIKMA PHARMACEUTICALS USA INC.-US-H14001-20-51426

PATIENT
  Age: 8 Year
  Sex: Male

DRUGS (3)
  1. MYCOPHENOLATE MOFETIL. [Suspect]
     Active Substance: MYCOPHENOLATE MOFETIL
     Indication: IMMUNOSUPPRESSANT DRUG THERAPY
     Route: 065
  2. PREDNISONE. [Suspect]
     Active Substance: PREDNISONE
     Indication: IMMUNOSUPPRESSANT DRUG THERAPY
     Route: 065
  3. CICLOSPORIN [Suspect]
     Active Substance: CYCLOSPORINE
     Indication: IMMUNOSUPPRESSANT DRUG THERAPY
     Route: 065

REACTIONS (10)
  - Cat scratch disease [Unknown]
  - Hypoalbuminaemia [Unknown]
  - Lymphadenopathy [Unknown]
  - Pleural effusion [Unknown]
  - Bacillary angiomatosis [Unknown]
  - Bone marrow failure [Recovering/Resolving]
  - Hyperkalaemia [Unknown]
  - Hyponatraemia [Unknown]
  - Ascites [Unknown]
  - Post transplant lymphoproliferative disorder [Unknown]
